FAERS Safety Report 5288011-8 (Version None)
Quarter: 2007Q2

REPORT INFORMATION
  Report Type: 
  Country: None (occurrence: None)
  Receive Date: 20070402
  Receipt Date: 20070402
  Transmission Date: 20071010
  Serious: Yes (Congenital Anomaly, Other)
  Sender: FDA-Public Use
  Company Number: None

PATIENT
  Age: 27 Year
  Sex: Female
  Weight: 67.1324 kg

DRUGS (2)
  1. PAXIL [Suspect]
     Indication: ANXIETY
     Dosage: 25MG BID PO
     Route: 048
  2. PAXIL [Suspect]
     Indication: DEPRESSION
     Dosage: 25MG BID PO
     Route: 048

REACTIONS (2)
  - ALOPECIA [None]
  - CARDIAC MURMUR [None]
